FAERS Safety Report 24584629 (Version 1)
Quarter: 2024Q4

REPORT INFORMATION
  Report Type: Spontaneous
  Country: TW (occurrence: TW)
  Receive Date: 20241106
  Receipt Date: 20241106
  Transmission Date: 20250115
  Serious: Yes (Hospitalization)
  Sender: MYLAN
  Company Number: TW-MYLANLABS-2024M1099715

PATIENT
  Age: 45 Year
  Sex: Female

DRUGS (14)
  1. FLUOROURACIL [Suspect]
     Active Substance: FLUOROURACIL
     Indication: Colon cancer
     Dosage: UNK, CYCLE; ~6 CYCLES; AS A PART OF FOLFIRI REGIMEN
     Route: 065
     Dates: start: 2020
  2. FLUOROURACIL [Suspect]
     Active Substance: FLUOROURACIL
     Indication: DNA mismatch repair protein gene mutation
  3. OXALIPLATIN [Suspect]
     Active Substance: OXALIPLATIN
     Indication: Colon cancer
     Dosage: UNK, CYCLE; 8 CYCLES; AS A PART OF FOLFOX REGIMEN
     Route: 065
     Dates: end: 2020
  4. OXALIPLATIN [Suspect]
     Active Substance: OXALIPLATIN
     Indication: DNA mismatch repair protein gene mutation
  5. IRINOTECAN [Suspect]
     Active Substance: IRINOTECAN
     Indication: Colon cancer
     Dosage: UNK, CYCLE; 6 CYCLES; AS A PART OF FOLFIRI REGIMEN
     Route: 065
     Dates: start: 2020
  6. IRINOTECAN [Suspect]
     Active Substance: IRINOTECAN
     Indication: DNA mismatch repair protein gene mutation
  7. FLUOROURACIL [Suspect]
     Active Substance: FLUOROURACIL
     Indication: Colon cancer
     Dosage: UNK UNK, CYCLE
     Route: 065
     Dates: end: 2020
  8. FLUOROURACIL [Suspect]
     Active Substance: FLUOROURACIL
     Indication: DNA mismatch repair protein gene mutation
  9. LEUCOVORIN [Suspect]
     Active Substance: LEUCOVORIN\LEUCOVORIN CALCIUM
     Indication: Colon cancer
     Dosage: UNK, CYCLE; 8 CYCLES; AS A PART OF FOLFOX REGIMEN
     Route: 065
     Dates: end: 2020
  10. LEUCOVORIN [Suspect]
     Active Substance: LEUCOVORIN\LEUCOVORIN CALCIUM
     Indication: DNA mismatch repair protein gene mutation
  11. LEUCOVORIN [Suspect]
     Active Substance: LEUCOVORIN\LEUCOVORIN CALCIUM
     Indication: Colon cancer
     Dosage: UNK; 6 CYCLES; AS A PART OF FOLFIRI REGIMEN
     Route: 065
  12. LEUCOVORIN [Suspect]
     Active Substance: LEUCOVORIN\LEUCOVORIN CALCIUM
     Indication: DNA mismatch repair protein gene mutation
  13. AVASTIN [Suspect]
     Active Substance: BEVACIZUMAB
     Indication: Colon cancer
     Dosage: UNK, CYCLE; 6 CYCLES
     Route: 065
     Dates: start: 2020
  14. AVASTIN [Suspect]
     Active Substance: BEVACIZUMAB
     Indication: DNA mismatch repair protein gene mutation

REACTIONS (1)
  - Drug ineffective [Unknown]

NARRATIVE: CASE EVENT DATE: 20200101
